FAERS Safety Report 15596252 (Version 4)
Quarter: 2018Q4

REPORT INFORMATION
  Report Type: Report from Study
  Country: None (occurrence: BR)
  Receive Date: 20181108
  Receipt Date: 20181116
  Transmission Date: 20190205
  Serious: Yes (Other)
  Sender: FDA-Public Use
  Company Number: BR-ABBVIE-18P-020-2546902-00

PATIENT
  Sex: Female

DRUGS (2)
  1. DEPAKOTE ER [Suspect]
     Active Substance: DIVALPROEX SODIUM
     Indication: BIPOLAR DISORDER
     Dosage: DAILY DOSE: 1000MG; FREQUENCY: MORNING / NIGHT
     Route: 048
     Dates: start: 20170530
  2. DEPAKOTE ER [Suspect]
     Active Substance: DIVALPROEX SODIUM
     Indication: AFFECTIVE DISORDER
     Dosage: AFTER DEPRESSION CRISIS TREATMENT GOT ADJUSTED FROM 250MG/DAY TO CURRENT TREATMENT.
     Route: 048
     Dates: start: 2012, end: 2014

REACTIONS (20)
  - Inappropriate schedule of product administration [Not Recovered/Not Resolved]
  - Blood triglycerides increased [Not Recovered/Not Resolved]
  - Increased appetite [Unknown]
  - Insomnia [Unknown]
  - Alanine aminotransferase increased [Unknown]
  - Blood insulin increased [Unknown]
  - High density lipoprotein decreased [Unknown]
  - Depression [Unknown]
  - Weight increased [Not Recovered/Not Resolved]
  - Musculoskeletal chest pain [Not Recovered/Not Resolved]
  - Aspartate aminotransferase increased [Unknown]
  - Blood glucose decreased [Unknown]
  - Weight increased [Recovered/Resolved]
  - Abdominal pain [Not Recovered/Not Resolved]
  - Abdominal distension [Unknown]
  - Obesity [Unknown]
  - Haemoglobin increased [Unknown]
  - Pulmonary oedema [Unknown]
  - Oedema peripheral [Unknown]
  - Localised oedema [Unknown]

NARRATIVE: CASE EVENT DATE: 2012
